FAERS Safety Report 11993581 (Version 4)
Quarter: 2018Q2

REPORT INFORMATION
  Report Type: Spontaneous
  Country: US (occurrence: US)
  Receive Date: 20160203
  Receipt Date: 20180507
  Transmission Date: 20180711
  Serious: No
  Sender: FDA-Public Use
  Company Number: US-PFIZER INC-2016013054

PATIENT
  Age: 90 Year
  Sex: Female
  Weight: 57.61 kg

DRUGS (1)
  1. LATANOPROST. [Suspect]
     Active Substance: LATANOPROST
     Dosage: UNK

REACTIONS (3)
  - Dry eye [Unknown]
  - Drug intolerance [Unknown]
  - Eye irritation [Unknown]
